FAERS Safety Report 6426749-7 (Version None)
Quarter: 2009Q4

REPORT INFORMATION
  Report Type: 
  Country: None (occurrence: None)
  Receive Date: 20091029
  Receipt Date: 20091019
  Transmission Date: 20100525
  Serious: Yes (Hospitalization)
  Sender: FDA-Public Use
  Company Number: WAES 0906USA04033

PATIENT
  Age: 76 Year
  Sex: Female

DRUGS (8)
  1. FOSAMAX [Suspect]
     Indication: OSTEOPOROSIS
     Dosage: 35 MG/WKY; PO
     Route: 048
     Dates: start: 20090122
  2. ARTIFICIAL TEAR MYTEAR [Concomitant]
  3. BLOPRESS [Concomitant]
  4. DEPAS [Concomitant]
  5. KARY UNI [Concomitant]
  6. PARIET [Concomitant]
  7. BENIDIPINE HYDROCHLORIDE [Concomitant]
  8. CALCIUM (UNSPECIFIED SIMVASTATIN) [Concomitant]

REACTIONS (13)
  - BLOOD PRESSURE DECREASED [None]
  - C-REACTIVE PROTEIN INCREASED [None]
  - CHILLS [None]
  - CONDITION AGGRAVATED [None]
  - DEHYDRATION [None]
  - GAIT DISTURBANCE [None]
  - NAUSEA [None]
  - OSTEOARTHRITIS [None]
  - PYREXIA [None]
  - PYURIA [None]
  - SEPSIS [None]
  - VENOUS THROMBOSIS [None]
  - VOMITING [None]
